FAERS Safety Report 24335371 (Version 1)
Quarter: 2024Q3

REPORT INFORMATION
  Report Type: Spontaneous
  Country: CN (occurrence: CN)
  Receive Date: 20240918
  Receipt Date: 20240918
  Transmission Date: 20241016
  Serious: Yes (Hospitalization)
  Sender: ABBVIE
  Company Number: CN-ABBVIE-5924861

PATIENT
  Age: 47 Year
  Sex: Female
  Weight: 60 kg

DRUGS (3)
  1. VENETOCLAX [Suspect]
     Active Substance: VENETOCLAX
     Indication: Leukaemia
     Dosage: DISCONTINUED. DAY 01 TO 07.
     Route: 048
     Dates: start: 20240815, end: 20240831
  2. NILOTINIB [Suspect]
     Active Substance: NILOTINIB
     Indication: Leukaemia
     Dosage: DISCONTINUED. DAY 01 TO 17.
     Route: 048
     Dates: start: 20240815, end: 20240829
  3. AZACITIDINE [Suspect]
     Active Substance: AZACITIDINE
     Indication: Leukaemia
     Dosage: DISCONTINUED. DAY 01 TO 07.
     Route: 058
     Dates: start: 20240815, end: 20240821

REACTIONS (3)
  - Myelosuppression [Recovering/Resolving]
  - Pyrexia [Recovered/Resolved]
  - Chills [Recovered/Resolved]

NARRATIVE: CASE EVENT DATE: 20240101
